FAERS Safety Report 6775082-2 (Version None)
Quarter: 2010Q2

REPORT INFORMATION
  Report Type: 
  Country: None (occurrence: None)
  Receive Date: 20100617
  Receipt Date: 20100609
  Transmission Date: 20101027
  Serious: Yes (Other)
  Sender: FDA-Public Use
  Company Number: B0659749A

PATIENT
  Sex: Male

DRUGS (4)
  1. AUGMENTIN '125' [Suspect]
     Indication: ANTIBIOTIC PROPHYLAXIS
     Route: 042
     Dates: start: 20090611, end: 20090611
  2. TRACRIUM [Concomitant]
     Route: 042
     Dates: start: 20090611, end: 20090611
  3. PROPOFOL [Concomitant]
     Route: 065
     Dates: start: 20090611
  4. SUFENTA PRESERVATIVE FREE [Concomitant]
     Route: 065
     Dates: start: 20090611

REACTIONS (5)
  - ANAPHYLACTIC REACTION [None]
  - BRONCHOSPASM [None]
  - GENERALISED ERYTHEMA [None]
  - HYPERSENSITIVITY [None]
  - TACHYCARDIA [None]
